FAERS Safety Report 25617300 (Version 1)
Quarter: 2025Q3

REPORT INFORMATION
  Report Type: Spontaneous
  Country: US (occurrence: US)
  Receive Date: 20250729
  Receipt Date: 20250729
  Transmission Date: 20251021
  Serious: Yes (Life-Threatening, Hospitalization)
  Sender: MYLAN
  Company Number: US-MYLANLABS-2025M1064089

PATIENT
  Age: 27 Year
  Sex: Male

DRUGS (12)
  1. EPINEPHRINE [Suspect]
     Active Substance: EPINEPHRINE
     Indication: Asthmatic crisis
  2. EPINEPHRINE [Suspect]
     Active Substance: EPINEPHRINE
     Indication: Respiratory failure
     Route: 065
  3. EPINEPHRINE [Suspect]
     Active Substance: EPINEPHRINE
     Route: 065
  4. EPINEPHRINE [Suspect]
     Active Substance: EPINEPHRINE
  5. MAGNESIUM [Suspect]
     Active Substance: MAGNESIUM
     Indication: Asthmatic crisis
  6. MAGNESIUM [Suspect]
     Active Substance: MAGNESIUM
     Indication: Respiratory failure
     Route: 065
  7. MAGNESIUM [Suspect]
     Active Substance: MAGNESIUM
     Route: 065
  8. MAGNESIUM [Suspect]
     Active Substance: MAGNESIUM
  9. PROPOFOL [Suspect]
     Active Substance: PROPOFOL
     Indication: Asthmatic crisis
  10. PROPOFOL [Suspect]
     Active Substance: PROPOFOL
     Indication: Respiratory failure
     Route: 065
  11. PROPOFOL [Suspect]
     Active Substance: PROPOFOL
     Indication: Sedative therapy
     Route: 065
  12. PROPOFOL [Suspect]
     Active Substance: PROPOFOL

REACTIONS (1)
  - Drug ineffective [Unknown]
